FAERS Safety Report 8127884-8 (Version None)
Quarter: 2012Q1

REPORT INFORMATION
  Report Type: 
  Country: None (occurrence: None)
  Receive Date: 20120210
  Receipt Date: 20111201
  Transmission Date: 20120608
  Serious: No
  Sender: FDA-Public Use
  Company Number: US-GLAXOSMITHKLINE-A0956229A

PATIENT
  Age: 58 Year
  Sex: Female

DRUGS (1)
  1. PAXIL [Suspect]
     Indication: DEPRESSION
     Route: 048
     Dates: start: 20010201, end: 20081201

REACTIONS (2)
  - PANIC ATTACK [None]
  - DRUG INEFFECTIVE [None]
